FAERS Safety Report 10109118 (Version 1)
Quarter: 2014Q2

REPORT INFORMATION
  Report Type: Spontaneous
  Country: US (occurrence: None)
  Receive Date: 20140424
  Receipt Date: 20140424
  Transmission Date: 20141212
  Serious: No
  Sender: FDA-Public Use
  Company Number: None

PATIENT
  Age: 36 Year
  Sex: Female
  Weight: 53.52 kg

DRUGS (4)
  1. FLUCONAZOLE [Suspect]
     Indication: FUNGAL INFECTION
     Route: 048
     Dates: start: 20140222, end: 20140222
  2. BIRTH CONTROL PILL [Concomitant]
  3. OMEGA OIL [Concomitant]
  4. PROBIOTIC [Concomitant]

REACTIONS (9)
  - Oral discomfort [None]
  - Oral discomfort [None]
  - Inflammation [None]
  - Rash pruritic [None]
  - Erythema [None]
  - Chapped lips [None]
  - Lip haemorrhage [None]
  - Skin hyperpigmentation [None]
  - Rash [None]
